FAERS Safety Report 10664847 (Version 2)
Quarter: 2015Q2

REPORT INFORMATION
  Report Type: Spontaneous
  Country: AT (occurrence: AT)
  Receive Date: 20141219
  Receipt Date: 20150421
  Transmission Date: 20150821
  Serious: Yes (Other)
  Sender: FDA-Public Use
  Company Number: AT-SA-2014SA174673

PATIENT
  Sex: Male

DRUGS (8)
  1. ZALTRAP [Suspect]
     Active Substance: ZIV-AFLIBERCEPT
     Indication: NEOPLASM MALIGNANT
     Route: 042
     Dates: start: 20140901, end: 20140901
  2. FLUOROURACIL. [Concomitant]
     Active Substance: FLUOROURACIL
     Dates: start: 20140623, end: 20140623
  3. ZALTRAP [Suspect]
     Active Substance: ZIV-AFLIBERCEPT
     Indication: NEOPLASM MALIGNANT
     Route: 042
     Dates: start: 20140623, end: 20140623
  4. FLUOROURACIL. [Concomitant]
     Active Substance: FLUOROURACIL
     Dates: start: 20140901, end: 20140901
  5. FOLINIC ACID [Concomitant]
     Active Substance: LEUCOVORIN
     Dates: start: 20140623, end: 20140623
  6. IRINOTECAN [Concomitant]
     Active Substance: IRINOTECAN
     Dates: start: 20140623, end: 20140623
  7. IRINOTECAN [Concomitant]
     Active Substance: IRINOTECAN
     Dates: start: 20140901, end: 20140901
  8. FOLINIC ACID [Concomitant]
     Active Substance: LEUCOVORIN
     Dates: start: 20140901, end: 20140901

REACTIONS (1)
  - Polyneuropathy [Recovering/Resolving]

NARRATIVE: CASE EVENT DATE: 20140915
